FAERS Safety Report 6763056-7 (Version None)
Quarter: 2010Q2

REPORT INFORMATION
  Report Type: 
  Country: None (occurrence: None)
  Receive Date: 20100609
  Receipt Date: 20100527
  Transmission Date: 20101027
  Serious: Yes (Other)
  Sender: FDA-Public Use
  Company Number: PHHY2010US33278

PATIENT
  Sex: Female

DRUGS (7)
  1. RECLAST [Suspect]
     Indication: OSTEOPOROSIS
     Dosage: UNK
     Dates: start: 20100310
  2. CYMBALTA [Concomitant]
     Dosage: 60 MG, UNK
  3. PREVACID [Concomitant]
     Dosage: UNK
  4. XANAX [Concomitant]
     Dosage: UNK
  5. ZESTRIL [Concomitant]
     Dosage: UNK
  6. RESTORIL [Concomitant]
     Dosage: UNK
  7. PERCOCET [Concomitant]
     Dosage: UNK

REACTIONS (9)
  - ARTHRALGIA [None]
  - BLOOD PRESSURE FLUCTUATION [None]
  - BLOOD PRESSURE INCREASED [None]
  - BONE PAIN [None]
  - DISCOMFORT [None]
  - DIZZINESS [None]
  - MENTAL DISORDER [None]
  - MYALGIA [None]
  - PAIN [None]
